FAERS Safety Report 5003224-8 (Version None)
Quarter: 2006Q2

REPORT INFORMATION
  Report Type: 
  Country: None (occurrence: None)
  Receive Date: 20060516
  Receipt Date: 20010919
  Transmission Date: 20061013
  Serious: Yes (Hospitalization, Disabling)
  Sender: FDA-Public Use
  Company Number: US-BRISTOL-MYERS SQUIBB COMPANY-10994051

PATIENT
  Age: 83 Year
  Sex: Female
  Weight: 60 kg

DRUGS (7)
  1. TEQUIN [Suspect]
     Indication: DEHYDRATION
     Route: 042
     Dates: start: 20010413, end: 20010415
  2. TEQUIN [Suspect]
     Indication: DIARRHOEA
     Route: 042
     Dates: start: 20010413, end: 20010415
  3. ASPIRIN [Concomitant]
     Route: 048
  4. TENORMIN [Concomitant]
     Indication: HYPERTENSION
     Route: 048
  5. CALCIUM GLUCONATE [Concomitant]
  6. MULTI-VITAMIN [Concomitant]
  7. VITAMIN B-12 [Concomitant]

REACTIONS (11)
  - AGGRESSION [None]
  - BLOOD PRESSURE INCREASED [None]
  - DIFFICULTY IN WALKING [None]
  - DIZZINESS [None]
  - HALLUCINATION [None]
  - HEART RATE INCREASED [None]
  - NERVOUS SYSTEM DISORDER [None]
  - PARANOIA [None]
  - THIRST [None]
  - TREMOR [None]
  - VESTIBULAR DISORDER [None]
